FAERS Safety Report 6842241-X (Version None)
Quarter: 2010Q3

REPORT INFORMATION
  Report Type: 
  Country: None (occurrence: None)
  Receive Date: 20100709
  Receipt Date: 20100702
  Transmission Date: 20110219
  Serious: Yes (Other)
  Sender: FDA-Public Use
  Company Number: 2010SP037195

PATIENT
  Age: 33 Year
  Sex: Female

DRUGS (3)
  1. PUREGON (FOLLITROPIN BETA /01348901/) [Suspect]
     Dosage: 50 IU; QD; SC
     Route: 058
     Dates: start: 20100125, end: 20100202
  2. SYNAREL [Suspect]
     Dosage: 2 DF; QD; NAS
     Route: 045
     Dates: start: 20091201, end: 20100202
  3. OVITRELLE (CHORIOGONADOTROPIN ALFA) [Suspect]
     Dosage: ; ONCE; SC
     Route: 058
     Dates: start: 20100203

REACTIONS (3)
  - ABDOMINAL PAIN [None]
  - AMENORRHOEA [None]
  - ERYTHEMA NODOSUM [None]
